FAERS Safety Report 7290335-X (Version None)
Quarter: 2011Q1

REPORT INFORMATION
  Report Type: 
  Country: None (occurrence: None)
  Receive Date: 20110214
  Receipt Date: 20110124
  Transmission Date: 20110831
  Serious: Yes (Hospitalization)
  Sender: FDA-Public Use
  Company Number: ES-BAYER-201039939GPV

PATIENT
  Sex: Male

DRUGS (4)
  1. NEXAVAR [Suspect]
     Indication: HEPATIC NEOPLASM MALIGNANT
     Dosage: 800 MG (DAILY DOSE), ORAL
     Route: 048
     Dates: start: 20100703, end: 20100825
  2. SPIRONOLACTONE [Concomitant]
     Dosage: 100 MG, QD
     Dates: start: 20100101
  3. PANTOPRAZOLE [Concomitant]
     Dosage: 40 MG, QD
     Dates: start: 20100101
  4. PROPRANOLOL [Concomitant]
     Dosage: 40 MG, QD
     Dates: start: 20060101

REACTIONS (3)
  - PNEUMOTHORAX [None]
  - HEPATIC ENCEPHALOPATHY [None]
  - DIARRHOEA [None]
